FAERS Safety Report 5755561-7 (Version None)
Quarter: 2008Q2

REPORT INFORMATION
  Report Type: 
  Country: None (occurrence: None)
  Receive Date: 20080530
  Receipt Date: 20080530
  Transmission Date: 20081010
  Serious: No
  Sender: FDA-Public Use
  Company Number: None

PATIENT
  Sex: Female

DRUGS (1)
  1. VANCOMYCIN [Suspect]
     Indication: URINARY TRACT INFECTION
     Dosage: 1 GRAM  Q24HRS IV
     Route: 042
     Dates: start: 20080519, end: 20080523

REACTIONS (1)
  - DRUG ERUPTION [None]
